FAERS Safety Report 8384395 (Version 2)
Quarter: 2012Q4

REPORT INFORMATION
  Report Type: 
  Country: FI (occurrence: FI)
  Receive Date: 20120202
  Receipt Date: 20120907
  Transmission Date: 20130627
  Serious: Yes (Hospitalization)
  Sender: FDA-Public Use
  Company Number: FI-JNJFOC-20120111086

PATIENT
  Sex: Male

DRUGS (2)
  1. CONCERTA [Suspect]
     Indication: ATTENTION DEFICIT/HYPERACTIVITY DISORDER
     Dosage: 6 months ago
     Route: 048
  2. SUBUTEX [Concomitant]
     Route: 065

REACTIONS (2)
  - Hepatitis C virus test positive [Unknown]
  - Jaundice [Recovering/Resolving]
